FAERS Safety Report 9511432 (Version 1)
Quarter: 2013Q1

REPORT INFORMATION
  Report Type: Spontaneous
  Country: US (occurrence: None)
  Receive Date: 20130305
  Receipt Date: 20130305
  Transmission Date: 20140127
  Serious: Yes (Hospitalization)
  Sender: FDA-Public Use
  Company Number: 163-21880-12021382

PATIENT
  Age: 84 Year
  Sex: Female

DRUGS (15)
  1. REVLIMID [Suspect]
     Indication: MYELODYSPLASTIC SYNDROME
     Dosage: 5 MG, X 21 DAYS, PO
     Route: 048
     Dates: start: 20120121, end: 20120126
  2. ADVIL (IBUPROFEN) [Concomitant]
  3. ALLOPURINOL [Concomitant]
  4. ARANESP (DARBEPOETIN ALFA) [Concomitant]
  5. ASA FREE (PARACETAMOL) (CHEWABLE TABLET) [Concomitant]
  6. ATENOLOL (ATENOLOL) [Concomitant]
  7. CALTRATE 6  + D (CALCITE D) (CHEWABLE TABLET) [Concomitant]
  8. DIOVAN (VALSARTAN) [Concomitant]
  9. FUROSEMIDE (FUROSEMIDE) [Concomitant]
  10. HYDROCODONE / APAP (VICODIN) [Concomitant]
  11. IRON (IRON) [Concomitant]
  12. METFORMIN (METFORMIN) [Concomitant]
  13. NEXIUM [Concomitant]
  14. NORVASC (AMLODIPINE SESILATE) [Concomitant]
  15. STOOL SOFTENER (DOCUSATE SODIUM) [Concomitant]

REACTIONS (4)
  - Chest pain [None]
  - Dizziness [None]
  - Tremor [None]
  - Swelling [None]
